FAERS Safety Report 7167843-5 (Version None)
Quarter: 2010Q4

REPORT INFORMATION
  Report Type: 
  Country: None (occurrence: None)
  Receive Date: 20101216
  Receipt Date: 20101205
  Transmission Date: 20110411
  Serious: Yes (Hospitalization)
  Sender: FDA-Public Use
  Company Number: US-SANOFI-AVENTIS-2010SA074087

PATIENT
  Age: 61 Year
  Sex: Female

DRUGS (2)
  1. LANTUS [Suspect]
     Dosage: DOSE:10 UNIT(S)
     Route: 058
     Dates: start: 20080101
  2. OPTICLICK [Suspect]
     Dates: start: 20080101

REACTIONS (2)
  - DEVICE MALFUNCTION [None]
  - LOWER LIMB FRACTURE [None]
